FAERS Safety Report 23664788 (Version 1)
Quarter: 2024Q1

REPORT INFORMATION
  Report Type: Spontaneous
  Country: MX (occurrence: MX)
  Receive Date: 20240322
  Receipt Date: 20240322
  Transmission Date: 20240409
  Serious: Yes (Disabling)
  Sender: FDA-Public Use
  Company Number: MX-002147023-NVSC2024MX062491

PATIENT
  Age: 74 Year
  Sex: Female
  Weight: 70 kg

DRUGS (2)
  1. TEGRETOL [Suspect]
     Active Substance: CARBAMAZEPINE
     Indication: Product used for unknown indication
     Dosage: 0.2 MG, BID (FORMULATION: DISPERSIBLE TABLET)(IN THE MORNING AND THE NIGHT)(1 AND 1/2)
     Route: 048
     Dates: start: 20240205
  2. TEGRETOL [Suspect]
     Active Substance: CARBAMAZEPINE
     Dosage: 0.2 MG, QD (1 (0.2 MG)) (DISPERSIBLE TABLET)
     Route: 065
     Dates: end: 20240317

REACTIONS (3)
  - Urticaria [Not Recovered/Not Resolved]
  - Thirst [Not Recovered/Not Resolved]
  - Off label use [Unknown]

NARRATIVE: CASE EVENT DATE: 20240205
